FAERS Safety Report 15452656 (Version 1)
Quarter: 2018Q4

REPORT INFORMATION
  Report Type: Spontaneous
  Country: US (occurrence: US)
  Receive Date: 20181001
  Receipt Date: 20181001
  Transmission Date: 20190204
  Serious: Yes (Other)
  Sender: FDA-Public Use
  Company Number: US-PFIZER INC-2018395530

PATIENT
  Sex: Female

DRUGS (1)
  1. TIKOSYN [Suspect]
     Active Substance: DOFETILIDE
     Dosage: 1 DF, 2X/DAY [1 A DAY IN MORNING AND 1 A DAY IN NIGHT]

REACTIONS (3)
  - Arthritis [Unknown]
  - Myocardial infarction [Unknown]
  - Stress [Unknown]
